FAERS Safety Report 5087931-7 (Version None)
Quarter: 2006Q3

REPORT INFORMATION
  Report Type: 
  Country: None (occurrence: None)
  Receive Date: 20060821
  Receipt Date: 20060811
  Transmission Date: 20061208
  Serious: Yes (Other)
  Sender: FDA-Public Use
  Company Number: 2006-08-0847

PATIENT
  Age: 49 Year
  Sex: Female

DRUGS (2)
  1. PEG-INTRON (INTERFERON ALFA-2B) REDIPEN [Suspect]
     Indication: HEPATITIS C
     Dosage: SUBCUTANEOUS
     Route: 058
     Dates: start: 20060324
  2. REBETOL [Suspect]
     Indication: HEPATITIS C
     Dosage: ORAL
     Route: 048
     Dates: start: 20060324

REACTIONS (6)
  - ALOPECIA [None]
  - DEHYDRATION [None]
  - DEPRESSED MOOD [None]
  - DRY SKIN [None]
  - FLUID INTAKE REDUCED [None]
  - SYNCOPE [None]
